FAERS Safety Report 24353160 (Version 1)
Quarter: 2024Q3

REPORT INFORMATION
  Report Type: Spontaneous
  Country: US (occurrence: US)
  Receive Date: 20240923
  Receipt Date: 20240923
  Transmission Date: 20241017
  Serious: Yes (Hospitalization, Other)
  Sender: MEITHEAL PHARMACEUTICALS
  Company Number: US-MEITHEAL-2024MPLIT00286

PATIENT
  Age: 21 Year
  Sex: Male

DRUGS (3)
  1. BLEOMYCIN [Suspect]
     Active Substance: BLEOMYCIN SULFATE
     Indication: Testicular germ cell cancer metastatic
     Route: 065
  2. ETOPOSIDE [Suspect]
     Active Substance: ETOPOSIDE
     Indication: Testicular germ cell cancer metastatic
     Route: 065
  3. CISPLATIN [Suspect]
     Active Substance: CISPLATIN
     Indication: Testicular germ cell cancer metastatic
     Route: 065

REACTIONS (2)
  - Paraneoplastic syndrome [Recovered/Resolved]
  - Hyperthyroidism [Recovered/Resolved]
